FAERS Safety Report 6840003-0 (Version None)
Quarter: 2010Q3

REPORT INFORMATION
  Report Type: 
  Country: None (occurrence: None)
  Receive Date: 20100714
  Receipt Date: 20100707
  Transmission Date: 20110219
  Serious: Yes (Hospitalization)
  Sender: FDA-Public Use
  Company Number: US-GILEAD-2010-0030272

PATIENT
  Sex: Female

DRUGS (12)
  1. LETAIRIS [Suspect]
     Indication: PULMONARY ARTERIAL HYPERTENSION
     Route: 048
     Dates: start: 20100203
  2. WARFARIN [Concomitant]
  3. FUROSEMIDE [Concomitant]
  4. LISINOPRIL [Concomitant]
  5. METOPROLOL [Concomitant]
  6. MIRTAZAPINE [Concomitant]
  7. MYCOPHENOLATE MOFETIL [Concomitant]
  8. FLUCONAZOLE [Concomitant]
  9. GABAPENTIN [Concomitant]
  10. NITROFURANTOIN [Concomitant]
  11. POTASSIUM CHLORIDE [Concomitant]
  12. VITAMIN D [Concomitant]

REACTIONS (3)
  - FALL [None]
  - HEAD INJURY [None]
  - LOCAL SWELLING [None]
